FAERS Safety Report 20880527 (Version 3)
Quarter: 2022Q4

REPORT INFORMATION
  Report Type: Spontaneous
  Country: US (occurrence: US)
  Receive Date: 20220526
  Receipt Date: 20221205
  Transmission Date: 20230113
  Serious: No
  Sender: FDA-Public Use
  Company Number: US-THERATECHNOLOGIES INC.-2022-THE-TES-000125

PATIENT

DRUGS (1)
  1. EGRIFTA SV [Suspect]
     Active Substance: TESAMORELIN ACETATE
     Indication: Lipodystrophy acquired
     Dosage: UNK
     Route: 058
     Dates: end: 202205

REACTIONS (5)
  - Panic attack [Unknown]
  - Anxiety [Unknown]
  - Nightmare [Unknown]
  - Sleep disorder [Unknown]
  - Wrong technique in product usage process [Unknown]
